FAERS Safety Report 12978033 (Version 1)
Quarter: 2016Q4

REPORT INFORMATION
  Report Type: Report from Study
  Country: US (occurrence: US)
  Receive Date: 20161128
  Receipt Date: 20161128
  Transmission Date: 20170207
  Serious: No
  Sender: FDA-Public Use
  Company Number: US-AMGEN-USASL2016158837

PATIENT
  Age: 77 Year
  Sex: Female

DRUGS (1)
  1. ENBREL [Suspect]
     Active Substance: ETANERCEPT
     Indication: RHEUMATOID ARTHRITIS
     Dosage: UNK UNK, QWK
     Route: 065

REACTIONS (8)
  - Injection site swelling [Unknown]
  - Injection site erythema [Unknown]
  - Tremor [Not Recovered/Not Resolved]
  - Blister [Unknown]
  - Arthropathy [Unknown]
  - Injection site inflammation [Unknown]
  - Drug ineffective [Unknown]
  - Injection site pruritus [Unknown]
